FAERS Safety Report 21525382 (Version 1)
Quarter: 2022Q4

REPORT INFORMATION
  Report Type: Spontaneous
  Country: CA (occurrence: CA)
  Receive Date: 20221030
  Receipt Date: 20221030
  Transmission Date: 20230113
  Serious: Yes (Death, Other)
  Sender: FDA-Public Use
  Company Number: CA-BRISTOL-MYERS SQUIBB COMPANY-2022-127343

PATIENT
  Sex: Female

DRUGS (129)
  1. ORENCIA [Suspect]
     Active Substance: ABATACEPT
     Indication: Rheumatoid arthritis
     Route: 065
  2. ACETAMINOPHEN [Concomitant]
     Active Substance: ACETAMINOPHEN
     Indication: Product used for unknown indication
     Route: 065
  3. ACTEMRA [Concomitant]
     Active Substance: TOCILIZUMAB
     Indication: Rheumatoid arthritis
     Route: 058
  4. ACTEMRA [Concomitant]
     Active Substance: TOCILIZUMAB
     Route: 058
  5. ACTEMRA [Concomitant]
     Active Substance: TOCILIZUMAB
     Route: 058
  6. ACTEMRA [Concomitant]
     Active Substance: TOCILIZUMAB
     Route: 058
  7. ALENDRONATE SODIUM [Concomitant]
     Active Substance: ALENDRONATE SODIUM
     Indication: Rheumatoid arthritis
     Route: 065
  8. PREDNISONE [Concomitant]
     Active Substance: PREDNISONE
     Indication: Product used for unknown indication
     Route: 065
  9. PREDNISONE [Concomitant]
     Active Substance: PREDNISONE
     Route: 048
  10. ARAVA [Concomitant]
     Active Substance: LEFLUNOMIDE
     Indication: Product used for unknown indication
     Route: 048
  11. ARAVA [Concomitant]
     Active Substance: LEFLUNOMIDE
     Route: 048
  12. ARAVA [Concomitant]
     Active Substance: LEFLUNOMIDE
     Route: 048
  13. ASACOL [Concomitant]
     Active Substance: MESALAMINE
     Indication: Crohn^s disease
     Route: 065
  14. AZATHIOPRINE SODIUM [Concomitant]
     Active Substance: AZATHIOPRINE SODIUM
     Indication: Rheumatoid arthritis
     Route: 065
  15. CAFFEINE [Concomitant]
     Active Substance: CAFFEINE
     Indication: Product used for unknown indication
     Route: 065
  16. CALCIUM CARBONATE [Concomitant]
     Active Substance: CALCIUM CARBONATE
     Indication: Product used for unknown indication
     Route: 065
  17. CETIRIZINE HYDROCHLORIDE [Concomitant]
     Active Substance: CETIRIZINE HYDROCHLORIDE
     Indication: Product used for unknown indication
     Route: 065
  18. CETIRIZINE HYDROCHLORIDE [Concomitant]
     Active Substance: CETIRIZINE HYDROCHLORIDE
     Route: 065
  19. CETIRIZINE HYDROCHLORIDE [Concomitant]
     Active Substance: CETIRIZINE HYDROCHLORIDE
     Route: 065
  20. CETIRIZINE HYDROCHLORIDE [Concomitant]
     Active Substance: CETIRIZINE HYDROCHLORIDE
     Route: 065
  21. CETIRIZINE HYDROCHLORIDE [Concomitant]
     Active Substance: CETIRIZINE HYDROCHLORIDE
     Route: 065
  22. CETIRIZINE HYDROCHLORIDE [Concomitant]
     Active Substance: CETIRIZINE HYDROCHLORIDE
     Route: 065
  23. CIMZIA [Concomitant]
     Active Substance: CERTOLIZUMAB PEGOL
     Indication: Rheumatoid arthritis
     Route: 058
  24. CIMZIA [Concomitant]
     Active Substance: CERTOLIZUMAB PEGOL
     Route: 058
  25. CIMZIA [Concomitant]
     Active Substance: CERTOLIZUMAB PEGOL
     Route: 058
  26. CODEINE [Concomitant]
     Active Substance: CODEINE
     Indication: Product used for unknown indication
     Route: 065
  27. DICLOFENAC [Concomitant]
     Active Substance: DICLOFENAC
     Indication: Product used for unknown indication
     Route: 065
  28. DICLOFENAC [Concomitant]
     Active Substance: DICLOFENAC
     Route: 065
  29. DICLOFENAC POTASSIUM [Concomitant]
     Active Substance: DICLOFENAC POTASSIUM
     Indication: Product used for unknown indication
     Route: 065
  30. DICLOFENAC SODIUM [Concomitant]
     Active Substance: DICLOFENAC SODIUM
     Indication: Product used for unknown indication
     Route: 065
  31. ENBREL [Concomitant]
     Active Substance: ETANERCEPT
     Indication: Rheumatoid arthritis
     Route: 058
  32. ENBREL [Concomitant]
     Active Substance: ETANERCEPT
     Route: 058
  33. ERELZI [Concomitant]
     Active Substance: ETANERCEPT-SZZS
     Indication: Rheumatoid arthritis
     Route: 065
  34. ERELZI [Concomitant]
     Active Substance: ETANERCEPT-SZZS
     Route: 065
  35. ERELZI [Concomitant]
     Active Substance: ETANERCEPT-SZZS
     Route: 065
  36. ERELZI [Concomitant]
     Active Substance: ETANERCEPT-SZZS
     Route: 065
  37. FOLIC ACID [Concomitant]
     Active Substance: FOLIC ACID
     Indication: Rheumatoid arthritis
     Route: 065
  38. FOLIC ACID [Concomitant]
     Active Substance: FOLIC ACID
     Route: 065
  39. FOLIC ACID [Concomitant]
     Active Substance: FOLIC ACID
     Route: 065
  40. FOLIC ACID [Concomitant]
     Active Substance: FOLIC ACID
     Route: 065
  41. FOLIC ACID [Concomitant]
     Active Substance: FOLIC ACID
     Route: 065
  42. FOLIC ACID [Concomitant]
     Active Substance: FOLIC ACID
     Route: 065
  43. FOLIC ACID [Concomitant]
     Active Substance: FOLIC ACID
     Route: 065
  44. FOLIC ACID [Concomitant]
     Active Substance: FOLIC ACID
     Route: 065
  45. FOLIC ACID [Concomitant]
     Active Substance: FOLIC ACID
     Route: 065
  46. FOSAMAX [Concomitant]
     Active Substance: ALENDRONATE SODIUM
     Indication: Rheumatoid arthritis
     Route: 016
  47. HUMIRA [Concomitant]
     Active Substance: ADALIMUMAB
     Indication: Rheumatoid arthritis
     Route: 058
  48. HUMIRA [Concomitant]
     Active Substance: ADALIMUMAB
     Route: 058
  49. HUMIRA [Concomitant]
     Active Substance: ADALIMUMAB
     Route: 065
  50. HYDROCORTISONE ACETATE [Concomitant]
     Active Substance: HYDROCORTISONE ACETATE
     Indication: Rheumatoid arthritis
     Route: 048
  51. HYDROXYCHLOROQUINE [Concomitant]
     Active Substance: HYDROXYCHLOROQUINE
     Indication: Product used for unknown indication
     Route: 048
  52. HYDROXYCHLOROQUINE [Concomitant]
     Active Substance: HYDROXYCHLOROQUINE
     Route: 048
  53. HYDROXYCHLOROQUINE SULFATE [Concomitant]
     Active Substance: HYDROXYCHLOROQUINE SULFATE
     Indication: Rheumatoid arthritis
     Route: 065
  54. HYDROXYCHLOROQUINE SULFATE [Concomitant]
     Active Substance: HYDROXYCHLOROQUINE SULFATE
     Route: 065
  55. HYDROXYCHLOROQUINE SULFATE [Concomitant]
     Active Substance: HYDROXYCHLOROQUINE SULFATE
     Route: 065
  56. INFLIXIMAB [Concomitant]
     Active Substance: INFLIXIMAB
     Indication: Product used for unknown indication
     Route: 042
  57. KEVZARA [Concomitant]
     Active Substance: SARILUMAB
     Indication: Rheumatoid arthritis
     Route: 065
  58. METHOTREXATE [Concomitant]
     Active Substance: METHOTREXATE
     Indication: Rheumatoid arthritis
     Route: 065
  59. METHOTREXATE [Concomitant]
     Active Substance: METHOTREXATE
     Route: 048
  60. METHOTREXATE [Concomitant]
     Active Substance: METHOTREXATE
     Route: 048
  61. METHOTREXATE [Concomitant]
     Active Substance: METHOTREXATE
     Route: 048
  62. METHOTREXATE [Concomitant]
     Active Substance: METHOTREXATE
     Route: 048
  63. METHOTREXATE [Concomitant]
     Active Substance: METHOTREXATE
     Route: 058
  64. METHOTREXATE [Concomitant]
     Active Substance: METHOTREXATE
     Route: 065
  65. METHOTREXATE [Concomitant]
     Active Substance: METHOTREXATE
     Route: 065
  66. METHOTREXATE [Concomitant]
     Active Substance: METHOTREXATE
     Route: 016
  67. METHOTREXATE [Concomitant]
     Active Substance: METHOTREXATE
     Route: 048
  68. METHOTREXATE [Concomitant]
     Active Substance: METHOTREXATE
     Route: 048
  69. MINOCYCLINE HYDROCHLORIDE [Concomitant]
     Active Substance: MINOCYCLINE HYDROCHLORIDE
     Indication: Rheumatoid arthritis
     Route: 065
  70. PANTOPRAZOLE [Concomitant]
     Active Substance: PANTOPRAZOLE
     Indication: Dyspepsia
     Route: 065
  71. PHTHALYLSULFATHIAZOLE [Concomitant]
     Active Substance: PHTHALYLSULFATHIAZOLE
     Indication: Rheumatoid arthritis
     Route: 065
  72. PHTHALYLSULFATHIAZOLE [Concomitant]
     Active Substance: PHTHALYLSULFATHIAZOLE
     Route: 065
  73. HYDROXYCHLOROQUINE DIPHOSPHATE [Concomitant]
     Active Substance: HYDROXYCHLOROQUINE DIPHOSPHATE
     Indication: Rheumatoid arthritis
     Route: 065
  74. HYDROXYCHLOROQUINE DIPHOSPHATE [Concomitant]
     Active Substance: HYDROXYCHLOROQUINE DIPHOSPHATE
     Route: 065
  75. PREDNISONE/ RITUXIMAB [Concomitant]
     Indication: Product used for unknown indication
     Route: 048
  76. PREDNISONE/ RITUXIMAB [Concomitant]
     Route: 048
  77. PREDNISONE/ RITUXIMAB [Concomitant]
     Route: 048
  78. PREDNISONE/ RITUXIMAB [Concomitant]
     Route: 048
  79. REMICADE [Concomitant]
     Active Substance: INFLIXIMAB
     Indication: Rheumatoid arthritis
     Route: 042
  80. REMICADE [Concomitant]
     Active Substance: INFLIXIMAB
     Route: 042
  81. REMICADE [Concomitant]
     Active Substance: INFLIXIMAB
     Route: 042
  82. REMICADE [Concomitant]
     Active Substance: INFLIXIMAB
     Route: 042
  83. REMICADE [Concomitant]
     Active Substance: INFLIXIMAB
     Route: 042
  84. RITUXIMAB [Concomitant]
     Active Substance: RITUXIMAB
     Indication: Product used for unknown indication
     Route: 065
  85. SIMPONI [Concomitant]
     Active Substance: GOLIMUMAB
     Indication: Rheumatoid arthritis
     Dosage: SOLUTION SUBCUTANEOUS
     Route: 065
  86. SIMPONI [Concomitant]
     Active Substance: GOLIMUMAB
     Route: 065
  87. SOLU-MEDROL [Concomitant]
     Active Substance: METHYLPREDNISOLONE SODIUM SUCCINATE
     Indication: Product used for unknown indication
     Route: 048
  88. STELARA [Concomitant]
     Active Substance: USTEKINUMAB
     Indication: Rheumatoid arthritis
     Route: 065
  89. STELARA [Concomitant]
     Active Substance: USTEKINUMAB
     Dosage: SOLUTION SUBCUTANEOUS
     Route: 065
  90. STELARA [Concomitant]
     Active Substance: USTEKINUMAB
     Route: 065
  91. SULFASALAZINE [Concomitant]
     Active Substance: SULFASALAZINE
     Indication: Product used for unknown indication
     Route: 058
  92. SULFASALAZINE [Concomitant]
     Active Substance: SULFASALAZINE
     Route: 058
  93. SULFASALAZINE [Concomitant]
     Active Substance: SULFASALAZINE
     Route: 058
  94. SULFASALAZINE [Concomitant]
     Active Substance: SULFASALAZINE
     Route: 058
  95. SULFASALAZINE [Concomitant]
     Active Substance: SULFASALAZINE
     Route: 058
  96. SULFASALAZINE [Concomitant]
     Active Substance: SULFASALAZINE
     Route: 058
  97. TOCILIZUMAB [Concomitant]
     Active Substance: TOCILIZUMAB
     Indication: Rheumatoid arthritis
     Route: 058
  98. TOCILIZUMAB [Concomitant]
     Active Substance: TOCILIZUMAB
     Route: 016
  99. TOCILIZUMAB [Concomitant]
     Active Substance: TOCILIZUMAB
     Route: 016
  100. USTEKINUMAB [Concomitant]
     Active Substance: USTEKINUMAB
     Indication: Rheumatoid arthritis
     Route: 058
  101. USTEKINUMAB [Concomitant]
     Active Substance: USTEKINUMAB
     Route: 058
  102. XELJANZ [Concomitant]
     Active Substance: TOFACITINIB CITRATE
     Indication: Rheumatoid arthritis
     Route: 065
  103. XELJANZ [Concomitant]
     Active Substance: TOFACITINIB CITRATE
     Route: 065
  104. ZESTRIL [Concomitant]
     Active Substance: LISINOPRIL
     Indication: Product used for unknown indication
     Route: 065
  105. ACETAMINOPHEN/TRAMADOL HYDROCHLORIDE/VITAMIN B1/VITAMIN B12 [Concomitant]
     Indication: Product used for unknown indication
     Route: 065
  106. ALENDRONIC ACID/CALCIUM CITRATE/VITAMIN D3 [Concomitant]
     Indication: Product used for unknown indication
     Route: 065
  107. AMMONIUM CHLORIDE\DIPHENHYDRAMINE HYDROCHLORIDE\MENTHOL\SODIUM CITRATE [Concomitant]
     Active Substance: AMMONIUM CHLORIDE\DIPHENHYDRAMINE HYDROCHLORIDE\MENTHOL\SODIUM CITRATE
     Indication: Product used for unknown indication
     Route: 065
  108. CALCIUM GLUBIONATE/VITAMIN B12/VITAMIN D3 [Concomitant]
     Indication: Rheumatoid arthritis
     Route: 065
  109. CALCIUM GLUBIONATE/VITAMIN B12/VITAMIN D3 [Concomitant]
     Route: 065
  110. DIPHENHYDRAMINE/ GLYCYRRHETINIC ACID/LIDOCAINE/MENTHOL/ NEOMYCIN SULFA [Concomitant]
     Indication: Product used for unknown indication
     Route: 065
  111. FLUSAN [FLUMETASONE PIVALATE;SALICYLIC ACID] [Concomitant]
     Indication: Product used for unknown indication
     Route: 003
  112. FLUSAN [FLUMETASONE PIVALATE;SALICYLIC ACID] [Concomitant]
     Route: 065
  113. ACETAMINOPHEN;BUTALBITAL;CAFFEINE;CODEINE PHOSPHATE [Concomitant]
     Indication: Product used for unknown indication
     Route: 065
  114. ACETAMINOPHEN;CHLORPHENAMINE MALEATE;DEXTROMETHORPHAN HYDROBROMIDE ;PS [Concomitant]
     Indication: Product used for unknown indication
     Route: 065
  115. CHONDROITIN SULFATE /GLUCOSAMINE SULFATE/MANGANESE/VITAMIN C [Concomitant]
     Indication: Product used for unknown indication
     Route: 065
  116. CORTISONE ACETATE;DIPHENHYDRAMINE HYDROCHLORIDE;SULFISOMIDINE [Concomitant]
     Indication: Rheumatoid arthritis
     Route: 065
  117. CORTISONE ACETATE;DIPHENHYDRAMINE HYDROCHLORIDE;SULFISOMIDINE [Concomitant]
     Route: 065
  118. COSENTYX [Concomitant]
     Active Substance: SECUKINUMAB
     Indication: Rheumatoid arthritis
     Route: 065
  119. COSENTYX [Concomitant]
     Active Substance: SECUKINUMAB
     Route: 065
  120. LORAZEPAM;TEMAZEPAM [Concomitant]
     Indication: Product used for unknown indication
     Route: 065
  121. HYDROCORTISONE/NEOMYCIN/NITROFURAZONE/ THYMOL/TYROTHRICIN/VITAMIN A [Concomitant]
     Indication: Rheumatoid arthritis
     Route: 048
  122. HYDROCORTISONE/NEOMYCIN/NITROFURAZONE/ THYMOL/TYROTHRICIN/VITAMIN A [Concomitant]
     Route: 048
  123. DESOXIMETASONE\FRAMYCETIN SULFATE\GRAMICIDIN [Concomitant]
     Active Substance: DESOXIMETASONE\FRAMYCETIN SULFATE\GRAMICIDIN
     Indication: Rheumatoid arthritis
     Route: 061
  124. DESOGESTREL\ETHINYL ESTRADIOL [Concomitant]
     Active Substance: DESOGESTREL\ETHINYL ESTRADIOL
     Indication: Product used for unknown indication
     Route: 065
  125. CHLORHEXIDINE\SODIUM FLUORIDE\TRICLOSAN\ZINC CHLORIDE [Concomitant]
     Active Substance: CHLORHEXIDINE\SODIUM FLUORIDE\TRICLOSAN\ZINC CHLORIDE
     Indication: Product used for unknown indication
     Route: 065
  126. AMINOSALICYLATE CALCIUM [Concomitant]
     Active Substance: AMINOSALICYLATE CALCIUM
     Indication: Product used for unknown indication
     Route: 065
  127. BUPIVACAINE HYDROCHLORIDE;CLONIDINE HYDROCHLORIDE;MORPHINE SULFATE [Concomitant]
     Indication: Rheumatoid arthritis
     Route: 065
  128. BIOFLAVONOIDS;CALCIUM ASCORBATE;HESPERIDIN;RUTOSIDE;SODIUM ASCORBATE;Z [Concomitant]
     Indication: Rheumatoid arthritis
     Route: 065
  129. ATIVAN [Concomitant]
     Active Substance: LORAZEPAM
     Indication: Product used for unknown indication
     Route: 065

REACTIONS (1)
  - Death [Fatal]
